FAERS Safety Report 18256128 (Version 2)
Quarter: 2020Q3

REPORT INFORMATION
  Report Type: Spontaneous
  Country: QA (occurrence: QA)
  Receive Date: 20200911
  Receipt Date: 20200915
  Transmission Date: 20201103
  Serious: Yes (Hospitalization, Other)
  Sender: FDA-Public Use
  Company Number: QA-SA-2020SA241569

PATIENT

DRUGS (5)
  1. MOXIFLOXACIN. [Concomitant]
     Active Substance: MOXIFLOXACIN
     Indication: MENINGITIS TUBERCULOUS
     Dosage: 400 MG, QD
     Route: 048
  2. RIFAMPICIN [Suspect]
     Active Substance: RIFAMPIN
     Indication: MENINGITIS TUBERCULOUS
     Dosage: 600 MG, QD
     Route: 048
  3. CYCLOSERINE. [Concomitant]
     Active Substance: CYCLOSERINE
     Indication: MENINGITIS TUBERCULOUS
     Dosage: 500 MG, BID
     Route: 048
  4. ETHIONAMIDE [Concomitant]
     Active Substance: ETHIONAMIDE
     Indication: MENINGITIS TUBERCULOUS
     Dosage: 500 MG, QD
     Route: 048
  5. PYRIDOXINE [Concomitant]
     Active Substance: PYRIDOXINE
     Indication: MENINGITIS TUBERCULOUS

REACTIONS (10)
  - Dyspnoea [Recovered/Resolved]
  - Respiratory failure [Recovered/Resolved]
  - Pneumonitis [Recovered/Resolved]
  - Acute respiratory distress syndrome [Recovered/Resolved]
  - Pyrexia [Recovered/Resolved]
  - Fatigue [Recovered/Resolved]
  - Headache [Recovered/Resolved]
  - Lethargy [Recovered/Resolved]
  - Lung opacity [Recovered/Resolved]
  - Rales [Recovered/Resolved]
